FAERS Safety Report 11634537 (Version 2)
Quarter: 2015Q4

REPORT INFORMATION
  Report Type: Spontaneous
  Country: US (occurrence: US)
  Receive Date: 20151015
  Receipt Date: 20151210
  Transmission Date: 20160304
  Serious: Yes (Hospitalization, Other)
  Sender: FDA-Public Use
  Company Number: US-MYLANLABS-2015M1024195

PATIENT

DRUGS (2)
  1. BUPROPION HYDROCHLORIDE TABLETS, USP [Suspect]
     Active Substance: BUPROPION HYDROCHLORIDE
     Dosage: 75 MG, QD
     Route: 048
     Dates: start: 201407, end: 201507
  2. LEVOTHYROXINE SODIUM TABLETS, USP [Suspect]
     Active Substance: LEVOTHYROXINE SODIUM
     Indication: HYPOTHYROIDISM
     Dosage: 75 ?G, QD
     Route: 048
     Dates: start: 20150611, end: 20150702

REACTIONS (3)
  - Renal failure [Not Recovered/Not Resolved]
  - Gluten sensitivity [Recovered/Resolved]
  - Treatment noncompliance [Recovered/Resolved]

NARRATIVE: CASE EVENT DATE: 2014
